FAERS Safety Report 4313069-X (Version None)
Quarter: 2004Q1

REPORT INFORMATION
  Report Type: 
  Country: None (occurrence: None)
  Receive Date: 20040304
  Receipt Date: 20040223
  Transmission Date: 20041129
  Serious: Yes (Hospitalization)
  Sender: FDA-Public Use
  Company Number: 2004012534

PATIENT
  Age: 92 Year
  Sex: Male

DRUGS (4)
  1. NEURONTIN [Suspect]
     Indication: EPILEPSY
     Dosage: ORAL
     Route: 048
     Dates: start: 20030715, end: 20031128
  2. ZOXAN LP (DOXAZOSIN) [Suspect]
     Indication: BENIGN NEOPLASM OF PROSTATE
     Dosage: ORAL
     Route: 048
     Dates: end: 20031127
  3. NITRENDIPINE (NITRENDIPINE) [Suspect]
     Indication: ESSENTIAL HYPERTENSION
     Dosage: ORAL
     Route: 048
     Dates: end: 20031127
  4. ACETYLSALICYLIC ACID SRT [Concomitant]

REACTIONS (1)
  - STATUS EPILEPTICUS [None]
